FAERS Safety Report 6442929-9 (Version None)
Quarter: 2009Q4

REPORT INFORMATION
  Report Type: 
  Country: None (occurrence: None)
  Receive Date: 20091112
  Receipt Date: 20091026
  Transmission Date: 20100525
  Serious: Yes (Death)
  Sender: FDA-Public Use
  Company Number: B0601864A

PATIENT
  Age: 46 Year
  Sex: Male
  Weight: 72.8477 kg

DRUGS (7)
  1. NICOTINE PATCH        (GENERIC) (NICOTINE) [Suspect]
     Indication: DRUG USE FOR UNKNOWN INDICATION
     Dosage: 25 PATCH / TRANSDERMAL
     Route: 062
  2. TRAMADOL HYDROCHLORIDE [Suspect]
  3. DIPHENHYDRAMINE (FORMULATION UNKNOWN) (GENERIC) (DIPHENHYDRAMINE) [Suspect]
  4. NICODERM CQ [Suspect]
     Dosage: ORAL
     Route: 048
  5. ACETAMINOPHEN [Suspect]
  6. TOBACCO (FORMULATION UNKNOWN) (TOBACCO) [Suspect]
  7. ZOPICLONE (FORMULATION UNKNOWN) (ZOPICLONE) [Suspect]

REACTIONS (14)
  - ARTERIOSCLEROSIS CORONARY ARTERY [None]
  - BLADDER DILATATION [None]
  - BRAIN OEDEMA [None]
  - CARDIOPULMONARY FAILURE [None]
  - COMPLETED SUICIDE [None]
  - CONJUNCTIVAL HAEMORRHAGE [None]
  - DRUG TOXICITY [None]
  - HYPERAEMIA [None]
  - MYOCARDIAL ISCHAEMIA [None]
  - PETECHIAE [None]
  - PLEURAL HAEMORRHAGE [None]
  - POTENTIATING DRUG INTERACTION [None]
  - PULMONARY OEDEMA [None]
  - VISCERAL CONGESTION [None]
